FAERS Safety Report 12340600 (Version 1)
Quarter: 2016Q2

REPORT INFORMATION
  Report Type: Report from Study
  Country: US (occurrence: US)
  Receive Date: 20160506
  Receipt Date: 20160506
  Transmission Date: 20160815
  Serious: Yes (Death, Hospitalization)
  Sender: FDA-Public Use
  Company Number: US-JNJFOC-20160412934

PATIENT
  Age: 63 Year
  Sex: Male
  Weight: 56 kg

DRUGS (3)
  1. WARFARIN [Concomitant]
     Active Substance: WARFARIN
  2. IMBRUVICA [Suspect]
     Active Substance: IBRUTINIB
     Indication: CHRONIC LYMPHOCYTIC LEUKAEMIA
     Route: 048
     Dates: start: 20150311, end: 20150831
  3. ALLOPURINOL. [Concomitant]
     Active Substance: ALLOPURINOL

REACTIONS (11)
  - Disease progression [Fatal]
  - Anaemia [Unknown]
  - Infection [Recovered/Resolved]
  - Gastrointestinal disorder [Unknown]
  - Limb injury [Unknown]
  - Neutropenia [Unknown]
  - Joint effusion [Unknown]
  - Haemoptysis [Unknown]
  - Urinary tract infection [Unknown]
  - International normalised ratio increased [Unknown]
  - Dandruff [Unknown]

NARRATIVE: CASE EVENT DATE: 201505
